FAERS Safety Report 8384534 (Version 2)
Quarter: 2013Q2

REPORT INFORMATION
  Report Type: Spontaneous
  Country: US (occurrence: None)
  Receive Date: 20111221
  Receipt Date: 20121227
  Transmission Date: 20140414
  Serious: Yes (Hospitalization)
  Sender: FDA-Public Use
  Company Number: PHEH2011US07437

PATIENT
  Age: 43 Year
  Sex: Female

DRUGS (3)
  1. EXJADE [Suspect]
     Indication: IRON OVERLOAD
     Dosage: 1000 MG, DAILY, ORAL
     Route: 048
     Dates: start: 20110823, end: 201108
  2. FIORICET (BUTALBITAL,  CAFFEINE. PARACETAMOL) [Concomitant]
  3. AMITRIPTYLINE (AMITRIPTYLINE) [Concomitant]

REACTIONS (4)
  - SICKLE CELL ANAEMIA WITH CRISIS [None]
  - NAUSEA [None]
  - DIZZINESS [None]
  - Rash [None]
